FAERS Safety Report 7621986-8 (Version None)
Quarter: 2011Q3

REPORT INFORMATION
  Report Type: 
  Country: None (occurrence: None)
  Receive Date: 20110720
  Receipt Date: 20110718
  Transmission Date: 20111222
  Serious: Yes (Hospitalization)
  Sender: FDA-Public Use
  Company Number: US-BRISTOL-MYERS SQUIBB COMPANY-15694524

PATIENT
  Age: 68 Year
  Sex: Female
  Weight: 74 kg

DRUGS (12)
  1. GABAPENTIN [Concomitant]
     Dates: start: 20100819
  2. HYDROCHLOROTHIAZIDE [Concomitant]
     Dates: start: 19650101
  3. SALMETEROL + FLUTICASONE [Concomitant]
     Dates: start: 20100913
  4. CARBOPLATIN [Suspect]
     Indication: NON-SMALL CELL LUNG CANCER
     Dosage: NO OF INF:4 LAST DOSE 460MG ON 07APR2011
     Route: 065
     Dates: start: 20110203
  5. HYDROCODONE BITARTRATE AND ACETAMINOPHEN [Concomitant]
     Dates: start: 20090707
  6. TRAVOPROST [Concomitant]
     Dosage: EYE DROPS
     Dates: start: 20090630
  7. PACLITAXEL [Suspect]
     Indication: NON-SMALL CELL LUNG CANCER
     Dosage: NO OF INF:3 LAST DOSE 290MG ON 07APR2011
     Route: 042
     Dates: start: 20110203
  8. ESOMEPRAZOLE MAGNESIUM [Concomitant]
     Dates: start: 20070101
  9. ROSUVASTATIN [Concomitant]
     Dates: start: 19900101
  10. NAPROXEN [Concomitant]
     Dates: start: 20100819
  11. BENZONATATE [Concomitant]
     Dates: start: 20090814
  12. SUCRALFATE [Concomitant]
     Dates: start: 20090101

REACTIONS (1)
  - HYPOVOLAEMIA [None]
